FAERS Safety Report 12360633 (Version 1)
Quarter: 2016Q2

REPORT INFORMATION
  Report Type: Spontaneous
  Country: US (occurrence: US)
  Receive Date: 20160512
  Receipt Date: 20160512
  Transmission Date: 20160815
  Serious: Yes (Other)
  Sender: FDA-Public Use
  Company Number: US-AMGEN-USASP2016057561

PATIENT
  Age: 75 Year
  Sex: Female

DRUGS (2)
  1. PROLIA [Suspect]
     Active Substance: DENOSUMAB
     Indication: PRODUCT USED FOR UNKNOWN INDICATION
     Dosage: UNK
     Route: 065
     Dates: start: 2012
  2. VITAMIN D [Concomitant]
     Active Substance: CHOLECALCIFEROL

REACTIONS (5)
  - Sleep disorder due to general medical condition, insomnia type [Unknown]
  - Muscle spasms [Recovering/Resolving]
  - Nephrolithiasis [Not Recovered/Not Resolved]
  - Spinal operation [Not Recovered/Not Resolved]
  - Myalgia [Unknown]
